FAERS Safety Report 10158046 (Version 1)
Quarter: 2014Q2

REPORT INFORMATION
  Report Type: Spontaneous
  Country: US (occurrence: US)
  Receive Date: 20140507
  Receipt Date: 20140507
  Transmission Date: 20141212
  Serious: No
  Sender: FDA-Public Use
  Company Number: US-009507513-1404USA015064

PATIENT
  Sex: Female

DRUGS (4)
  1. CLARITIN [Suspect]
     Indication: PRODUCT USED FOR UNKNOWN INDICATION
     Dosage: 10 MG, QD
     Route: 048
     Dates: start: 201312
  2. ARIMIDEX [Concomitant]
     Indication: BREAST CANCER
     Dosage: UNK, UNKNOWN
  3. VICODIN [Concomitant]
     Indication: SLEEP DISORDER
     Dosage: UNK, UNKNOWN
  4. HUMIRA [Concomitant]
     Indication: CROHN^S DISEASE
     Dosage: UNK, UNKNOWN
     Dates: start: 201308

REACTIONS (2)
  - Nasal dryness [Unknown]
  - Epistaxis [Unknown]
